FAERS Safety Report 5121292-X (Version None)
Quarter: 2006Q4

REPORT INFORMATION
  Report Type: 
  Country: None (occurrence: None)
  Receive Date: 20061002
  Receipt Date: 20060918
  Transmission Date: 20070319
  Serious: Yes (Other)
  Sender: FDA-Public Use
  Company Number: 2006112067

PATIENT
  Age: 76 Year
  Sex: Male
  Weight: 88.905 kg

DRUGS (8)
  1. SUTENT [Suspect]
     Indication: RENAL CELL CARCINOMA STAGE UNSPECIFIED
     Dates: start: 20060308
  2. PROTONIX [Concomitant]
  3. ZOCOR [Concomitant]
  4. TOPROL-XL [Concomitant]
  5. NORVASC [Concomitant]
  6. ASPIRIN [Concomitant]
  7. RENAGEL [Concomitant]
  8. SENSIPAR                         (CINACALCET HYDROCHLORIDE) [Concomitant]

REACTIONS (2)
  - BLOOD PARATHYROID HORMONE INCREASED [None]
  - PLATELET COUNT DECREASED [None]
